FAERS Safety Report 23390615 (Version 2)
Quarter: 2024Q1

REPORT INFORMATION
  Report Type: Spontaneous
  Country: AU (occurrence: AU)
  Receive Date: 20240111
  Receipt Date: 20240119
  Transmission Date: 20240410
  Serious: Yes (Other)
  Sender: FDA-Public Use
  Company Number: AU-BEH-2024167236

PATIENT
  Age: 11 Month
  Sex: Female
  Weight: 8.7 kg

DRUGS (6)
  1. HUMAN IMMUNOGLOBULIN G [Suspect]
     Active Substance: HUMAN IMMUNOGLOBULIN G
     Indication: Hypogammaglobulinaemia
     Dosage: 5 GRAM, QMT
     Route: 042
     Dates: start: 20230921, end: 20230921
  2. AMPHOTERICIN B [Concomitant]
     Active Substance: AMPHOTERICIN B
     Indication: Acute lymphocytic leukaemia
     Dosage: 25 MILLIGRAM, QD
     Dates: start: 20230920
  3. CLONIDINE [Concomitant]
     Active Substance: CLONIDINE
     Dosage: 3.8 MICROGRAM, PRN
     Dates: start: 20230920
  4. CYTARABINE [Concomitant]
     Active Substance: CYTARABINE
     Indication: Acute lymphocytic leukaemia
     Dosage: 21 MILLIGRAM, QD
     Dates: start: 20230920
  5. ENALAPRIL [Concomitant]
     Active Substance: ENALAPRIL
     Indication: Cardiac failure
     Dosage: 0.8 MILLIGRAM, PRN
     Dates: start: 20230920
  6. THIOGUANINE ANHYDROUS [Concomitant]
     Active Substance: THIOGUANINE ANHYDROUS
     Indication: Acute lymphocytic leukaemia
     Dosage: 20 MILLIGRAM, QD
     Dates: start: 20230920

REACTIONS (7)
  - Heart rate increased [Recovered/Resolved]
  - Body temperature increased [Recovered/Resolved]
  - Blood pressure increased [Recovered/Resolved]
  - Respiratory rate increased [Recovered/Resolved]
  - Chills [Recovered/Resolved]
  - Livedo reticularis [Recovered/Resolved]
  - Capillary nail refill test abnormal [Recovered/Resolved]

NARRATIVE: CASE EVENT DATE: 20230921
